FAERS Safety Report 7129256-1 (Version None)
Quarter: 2010Q4

REPORT INFORMATION
  Report Type: 
  Country: None (occurrence: None)
  Receive Date: 20101130
  Receipt Date: 20101122
  Transmission Date: 20110411
  Serious: Yes (Other)
  Sender: FDA-Public Use
  Company Number: US-PFIZER INC-2010064351

PATIENT
  Sex: Male
  Weight: 72.562 kg

DRUGS (6)
  1. CAVERJECT [Suspect]
     Indication: ERECTILE DYSFUNCTION
     Dosage: 20 UG, AS NEEDED
     Route: 017
  2. ALPROSTADIL [Suspect]
     Indication: ERECTILE DYSFUNCTION
     Dosage: UNK
  3. CIALIS [Suspect]
     Dosage: UNK
     Route: 048
  4. LEVITRA [Suspect]
     Dosage: UNK
     Route: 048
  5. PAXIL [Concomitant]
     Indication: ANXIETY
     Dosage: 10 MG, UNK
  6. PAXIL [Concomitant]
     Indication: DEPRESSION

REACTIONS (4)
  - DRUG ADMINISTERED AT INAPPROPRIATE SITE [None]
  - DRUG INEFFECTIVE [None]
  - INJECTION SITE HAEMATOMA [None]
  - PAINFUL ERECTION [None]
